FAERS Safety Report 26055374 (Version 2)
Quarter: 2025Q4

REPORT INFORMATION
  Report Type: Report from Study
  Country: US (occurrence: US)
  Receive Date: 20251117
  Receipt Date: 20251210
  Transmission Date: 20260117
  Serious: Yes (Other)
  Sender: MERCK SHARP & DOHME LLC
  Company Number: US-009507513-2348514

PATIENT
  Sex: Female

DRUGS (6)
  1. WINREVAIR [Suspect]
     Active Substance: SOTATERCEPT-CSRK
     Indication: Pulmonary arterial hypertension
     Route: 058
     Dates: start: 20250908
  2. WINREVAIR [Suspect]
     Active Substance: SOTATERCEPT-CSRK
  3. WINREVAIR [Suspect]
     Active Substance: SOTATERCEPT-CSRK
  4. WINREVAIR [Suspect]
     Active Substance: SOTATERCEPT-CSRK
  5. UPTRAVI [Concomitant]
     Active Substance: SELEXIPAG
  6. LETAIRIS [Concomitant]
     Active Substance: AMBRISENTAN

REACTIONS (12)
  - Haematochezia [Recovered/Resolved]
  - Laboratory test abnormal [Unknown]
  - Paraesthesia [Unknown]
  - Nausea [Unknown]
  - Dizziness [Unknown]
  - Epistaxis [Recovered/Resolved]
  - Sinus tachycardia [Unknown]
  - Defect conduction intraventricular [Unknown]
  - Left atrial enlargement [Unknown]
  - Joint instability [Unknown]
  - Dyspnoea exertional [Unknown]
  - Hypoaesthesia [Unknown]

NARRATIVE: CASE EVENT DATE: 20250101
